FAERS Safety Report 12982329 (Version 1)
Quarter: 2016Q4

REPORT INFORMATION
  Report Type: Spontaneous
  Country: US (occurrence: US)
  Receive Date: 20161129
  Receipt Date: 20161129
  Transmission Date: 20170207
  Serious: Yes (Hospitalization)
  Sender: FDA-Public Use
  Company Number: None

PATIENT
  Age: 78 Year
  Sex: Female

DRUGS (1)
  1. ENOXAPARIN 80MG/0.8ML [Suspect]
     Active Substance: ENOXAPARIN
     Indication: THROMBOSIS
     Route: 058
     Dates: start: 20150227

REACTIONS (1)
  - Renal cyst excision [None]

NARRATIVE: CASE EVENT DATE: 20161111
